FAERS Safety Report 5115245-5 (Version None)
Quarter: 2006Q3

REPORT INFORMATION
  Report Type: 
  Country: None (occurrence: None)
  Receive Date: 20060922
  Receipt Date: 20060906
  Transmission Date: 20061208
  Serious: Yes (Hospitalization, Other)
  Sender: FDA-Public Use
  Company Number: 2006RR-03808

PATIENT
  Age: 72 Year
  Sex: Female

DRUGS (3)
  1. CO-AMOXICLAV (CLAVULANIC ACID, AMOXICILLIN TRIHYDRATE) [Suspect]
     Indication: LOWER RESPIRATORY TRACT INFECTION
     Dosage: UNK, TID; ORAL
     Route: 048
     Dates: start: 20060712, end: 20060718
  2. ACICLOVIR 800 MG TABLETS BP (ACYCLOVIR) [Suspect]
     Indication: HERPES ZOSTER
     Dosage: 800 MG, QOD; ORAL
     Route: 048
     Dates: start: 20060712, end: 20060718
  3. WARFARIN SODIUM [Concomitant]

REACTIONS (2)
  - HAEMATOMA [None]
  - INTERNATIONAL NORMALISED RATIO INCREASED [None]
